FAERS Safety Report 19006256 (Version 1)
Quarter: 2021Q1

REPORT INFORMATION
  Report Type: Spontaneous
  Country: ES (occurrence: ES)
  Receive Date: 20210315
  Receipt Date: 20210315
  Transmission Date: 20210420
  Serious: Yes (Hospitalization)
  Sender: FDA-Public Use
  Company Number: ES-AUROBINDO-AUR-APL-2021-009713

PATIENT
  Age: 57 Year
  Sex: Male
  Weight: 81 kg

DRUGS (10)
  1. FLUOROURACIL. [Suspect]
     Active Substance: FLUOROURACIL
     Indication: GASTROOESOPHAGEAL CANCER
     Dosage: 5096 MILLIGRAM, CYCLICAL (ONCE EVERY TWO WEEKS)
     Route: 042
     Dates: start: 20201013
  2. DOCETAXEL. [Suspect]
     Active Substance: DOCETAXEL
     Indication: GASTROOESOPHAGEAL CANCER
     Dosage: 98 MILLIGRAM, CYCLICAL (ONCE EVERY TWO WEEKS)
     Route: 042
     Dates: start: 20201013
  3. FLUOROURACIL. [Suspect]
     Active Substance: FLUOROURACIL
     Dosage: 5096 MILLIGRAM, CYCLICAL (ONCE EVERY TWO WEEKS)
     Route: 042
     Dates: start: 20210217
  4. OXALIPLATIN. [Suspect]
     Active Substance: OXALIPLATIN
     Indication: GASTROOESOPHAGEAL CANCER
     Dosage: 167 MILLIGRAM, CYCLICAL (ONCE EVERY TWO WEEKS)
     Route: 042
     Dates: start: 20201013
  5. AVELUMAB [Concomitant]
     Active Substance: AVELUMAB
     Indication: GASTROOESOPHAGEAL CANCER
     Dosage: 769 MILLIGRAM, CYCLICAL (ONCE EVERY TWO WEEKS)
     Route: 042
     Dates: start: 20201013
  6. OXALIPLATIN. [Suspect]
     Active Substance: OXALIPLATIN
     Dosage: 167 MILLIGRAM, CYCLICAL (ONCE EVERY TWO WEEKS)
     Route: 042
     Dates: start: 20210217
  7. AVELUMAB [Concomitant]
     Active Substance: AVELUMAB
     Dosage: 769 MILLIGRAM, CYCLICAL (ONCE EVERY TWO WEEKS)
     Route: 042
     Dates: start: 20210217
  8. DOCETAXEL. [Suspect]
     Active Substance: DOCETAXEL
     Dosage: 98 MILLIGRAM, CYCLICAL (ONCE EVERY TWO WEEKS)
     Route: 042
     Dates: start: 20210217
  9. CALCIUM FOLINATE [Concomitant]
     Active Substance: LEUCOVORIN CALCIUM
     Indication: GASTROOESOPHAGEAL CANCER
     Dosage: 400 MILLIGRAM, CYCLICAL (ONCE EVERY TWO WEEKS)
     Route: 042
     Dates: start: 20201013
  10. CALCIUM FOLINATE [Concomitant]
     Active Substance: LEUCOVORIN CALCIUM
     Dosage: 400 MILLIGRAM, CYCLICAL (ONCE EVERY TWO WEEKS)
     Route: 042
     Dates: start: 20210217

REACTIONS (1)
  - Infection [Not Recovered/Not Resolved]

NARRATIVE: CASE EVENT DATE: 20210218
